FAERS Safety Report 4606971-2 (Version None)
Quarter: 2005Q1

REPORT INFORMATION
  Report Type: 
  Country: None (occurrence: None)
  Receive Date: 20050310
  Receipt Date: 20050301
  Transmission Date: 20050727
  Serious: Yes (Other)
  Sender: FDA-Public Use
  Company Number: US-2005-003098

PATIENT
  Sex: Male

DRUGS (1)
  1. CLIMARA [Suspect]
     Indication: PROSTATE CANCER
     Dosage: 0.6 MG/D, CONT (6 PATCHES .1MG/D), TRANSDERMAL
     Route: 062

REACTIONS (1)
  - ANGINA PECTORIS [None]
